FAERS Safety Report 11188604 (Version 1)
Quarter: 2015Q2

REPORT INFORMATION
  Report Type: Spontaneous
  Country: US (occurrence: US)
  Receive Date: 20150615
  Receipt Date: 20150615
  Transmission Date: 20150821
  Serious: No
  Sender: FDA-Public Use
  Company Number: US-009507513-1506USA007103

PATIENT
  Age: 32 Year
  Sex: Female

DRUGS (2)
  1. NEXPLANON [Suspect]
     Active Substance: ETONOGESTREL
     Indication: CONTRACEPTION
     Dosage: 68 MG/ ONE ROD, UNK
     Route: 059
     Dates: start: 20150506, end: 20150604
  2. NEXPLANON [Suspect]
     Active Substance: ETONOGESTREL
     Dosage: 68 MG/ ONE ROD, UNK
     Route: 059
     Dates: start: 20150604

REACTIONS (5)
  - Implant site scar [Unknown]
  - Device dislocation [Recovered/Resolved]
  - Erythema [Unknown]
  - Skin irritation [Unknown]
  - Device difficult to use [Recovered/Resolved]

NARRATIVE: CASE EVENT DATE: 2015
